FAERS Safety Report 13604792 (Version 1)
Quarter: 2017Q2

REPORT INFORMATION
  Report Type: Spontaneous
  Country: US (occurrence: US)
  Receive Date: 20170601
  Receipt Date: 20170601
  Transmission Date: 20170830
  Serious: Yes (Other)
  Sender: FDA-Public Use
  Company Number: None

PATIENT
  Age: 75 Year
  Sex: Female
  Weight: 77.18 kg

DRUGS (11)
  1. LEVEMIR [Concomitant]
     Active Substance: INSULIN DETEMIR
  2. VICTOZA [Concomitant]
     Active Substance: LIRAGLUTIDE
  3. BIOTIN [Concomitant]
     Active Substance: BIOTIN
  4. VITAMIN D3 [Concomitant]
     Active Substance: CHOLECALCIFEROL
  5. METFORMIN [Concomitant]
     Active Substance: METFORMIN HYDROCHLORIDE
  6. INVOKANA [Concomitant]
     Active Substance: CANAGLIFLOZIN
  7. SYNTHROID [Concomitant]
     Active Substance: LEVOTHYROXINE SODIUM
  8. ELMIRON [Suspect]
     Active Substance: PENTOSAN POLYSULFATE SODIUM
     Indication: CYSTITIS INTERSTITIAL
     Route: 048
     Dates: start: 20170325
  9. BABY ASPIRIN [Concomitant]
     Active Substance: ASPIRIN
  10. COZAAR [Concomitant]
     Active Substance: LOSARTAN POTASSIUM
  11. MONTELUCAST [Concomitant]
     Active Substance: MONTELUKAST SODIUM

REACTIONS (2)
  - Urticaria [None]
  - Eye pain [None]

NARRATIVE: CASE EVENT DATE: 20170324
